FAERS Safety Report 5360901-7 (Version None)
Quarter: 2007Q2

REPORT INFORMATION
  Report Type: 
  Country: None (occurrence: None)
  Receive Date: 20070618
  Receipt Date: 20070608
  Transmission Date: 20071010
  Serious: Yes (Other)
  Sender: FDA-Public Use
  Company Number: HQWYE948002MAY07

PATIENT
  Age: 9 Year
  Sex: Male

DRUGS (1)
  1. NONACOG ALFA [Suspect]
     Indication: MUSCLE HAEMORRHAGE
     Dosage: 5X (FREQUENCY NOT REPORTED)
     Dates: start: 20070417, end: 20070428

REACTIONS (3)
  - DRUG INEFFECTIVE FOR UNAPPROVED INDICATION [None]
  - HAEMORRHAGE [None]
  - WRONG DRUG ADMINISTERED [None]
